FAERS Safety Report 7228662 (Version 2)
Quarter: 2013Q3

REPORT INFORMATION
  Report Type: Spontaneous
  Country: US (occurrence: None)
  Receive Date: 20091029
  Receipt Date: 20130903
  Transmission Date: 20140515
  Serious: Yes (Hospitalization)
  Sender: FDA-Public Use
  Company Number: 87759

PATIENT
  Age: 36 Year
  Sex: Female
  Weight: 83 kg

DRUGS (1)
  1. CARBOPLATIN [Suspect]
     Indication: BREAST CANCER
     Dosage: UNK

REACTIONS (26)
  - Urticaria [None]
  - Chest pain [None]
  - Hypersensitivity [None]
  - Chest discomfort [None]
  - Leukopenia [None]
  - Granulocytopenia [None]
  - Lymphopenia [None]
  - Haemoglobin decreased [None]
  - Nausea [None]
  - Vomiting [None]
  - Hypotension [None]
  - Colitis ischaemic [None]
  - Gastrointestinal necrosis [None]
  - Abdominal pain upper [None]
  - Sepsis [None]
  - Pyrexia [None]
  - Inflammation [None]
  - Liver disorder [None]
  - Jaundice [None]
  - Arrhythmia [None]
  - Tachycardia [None]
  - Diarrhoea [None]
  - Leukocytosis [None]
  - Colitis [None]
  - Chest discomfort [None]
  - Shock [None]
